FAERS Safety Report 19861840 (Version 1)
Quarter: 2021Q3

REPORT INFORMATION
  Report Type: Spontaneous
  Country: US (occurrence: US)
  Receive Date: 20210921
  Receipt Date: 20210921
  Transmission Date: 20211014
  Serious: No
  Sender: FDA-Public Use
  Company Number: None

PATIENT
  Sex: Male

DRUGS (1)
  1. BICALUTAMIDE. [Suspect]
     Active Substance: BICALUTAMIDE

REACTIONS (5)
  - Rash erythematous [None]
  - Drug hypersensitivity [None]
  - Pruritus [None]
  - Middle insomnia [None]
  - Rash [None]
